FAERS Safety Report 8925292 (Version 1)
Quarter: 2012Q4

REPORT INFORMATION
  Report Type: 
  Country: JP (occurrence: JP)
  Receive Date: 20121126
  Receipt Date: 20121126
  Transmission Date: 20130627
  Serious: Yes (Other)
  Sender: FDA-Public Use
  Company Number: JP-PFIZER INC-2012295283

PATIENT
  Sex: Male

DRUGS (3)
  1. LYRICA [Suspect]
     Indication: POST HERPETIC NEURALGIA
     Dosage: 150 mg, 1x/day
     Dates: start: 201205, end: 201208
  2. LYRICA [Suspect]
     Dosage: 50 mg, 1x/day
     Dates: start: 201208, end: 201208
  3. LYRICA [Suspect]
     Dosage: 25 mg, 1x/day
     Dates: start: 201208

REACTIONS (4)
  - Muscle atrophy [Unknown]
  - Hypotonia [Unknown]
  - Gait disturbance [Unknown]
  - Muscular weakness [Unknown]
